FAERS Safety Report 7204859-4 (Version None)
Quarter: 2010Q4

REPORT INFORMATION
  Report Type: 
  Country: None (occurrence: None)
  Receive Date: 20101217
  Receipt Date: 20101208
  Transmission Date: 20110411
  Serious: Yes (Death)
  Sender: FDA-Public Use
  Company Number: 2010AT000116

PATIENT
  Age: 48 Year
  Sex: Female

DRUGS (13)
  1. THEO-24 [Suspect]
  2. FENTANYL [Suspect]
     Dosage: TDER
     Route: 062
  3. DULOXETINE [Suspect]
  4. HYDROCODONE [Concomitant]
  5. GABAPENTIN [Concomitant]
  6. LORAZEPAM [Concomitant]
  7. LISINOPRIL [Suspect]
  8. MECLIZINE [Suspect]
  9. TEMAZEPAM [Concomitant]
  10. PANTOPRAZOLE [Concomitant]
  11. SALSALATE [Concomitant]
  12. . [Concomitant]
  13. . [Concomitant]

REACTIONS (5)
  - ACCIDENTAL DEATH [None]
  - DIZZINESS [None]
  - DRUG TOXICITY [None]
  - DYSARTHRIA [None]
  - PAIN IN EXTREMITY [None]
